FAERS Safety Report 23451711 (Version 2)
Quarter: 2024Q2

REPORT INFORMATION
  Report Type: Spontaneous
  Country: US (occurrence: US)
  Receive Date: 20240129
  Receipt Date: 20240416
  Transmission Date: 20240716
  Serious: No
  Sender: FDA-Public Use
  Company Number: US-SA-SAC20240119001421

PATIENT
  Age: 60 Year
  Sex: Female

DRUGS (1)
  1. DUPIXENT [Suspect]
     Active Substance: DUPILUMAB
     Indication: Neurodermatitis
     Dosage: 300 MG, QOW
     Route: 058
     Dates: start: 202310

REACTIONS (8)
  - Pain in extremity [Unknown]
  - Urticaria [Unknown]
  - Dry skin [Unknown]
  - Chest discomfort [Unknown]
  - Injection site pain [Recovered/Resolved]
  - Injection site swelling [Recovered/Resolved]
  - Product preparation error [Unknown]
  - Injection site pain [Unknown]

NARRATIVE: CASE EVENT DATE: 20231016
